FAERS Safety Report 7971594-4 (Version None)
Quarter: 2011Q4

REPORT INFORMATION
  Report Type: 
  Country: None (occurrence: None)
  Receive Date: 20111209
  Receipt Date: 20111209
  Transmission Date: 20120403
  Serious: No
  Sender: FDA-Public Use
  Company Number: None

PATIENT
  Age: 63 Year
  Sex: Male
  Weight: 97.7 kg

DRUGS (1)
  1. IODIXANOL [Suspect]
     Indication: COMPUTERISED TOMOGRAM
     Dosage: 100 MG ONCE IV
     Route: 042
     Dates: start: 20111004, end: 20111004

REACTIONS (4)
  - VOMITING [None]
  - NAUSEA [None]
  - CONTRAST MEDIA REACTION [None]
  - RASH [None]
